FAERS Safety Report 13852799 (Version 1)
Quarter: 2017Q3

REPORT INFORMATION
  Report Type: Spontaneous
  Country: US (occurrence: US)
  Receive Date: 20170809
  Receipt Date: 20170809
  Transmission Date: 20171127
  Serious: No
  Sender: FDA-Public Use
  Company Number: US-ROCHE-747875

PATIENT
  Sex: Female
  Weight: 69.1 kg

DRUGS (3)
  1. BONIVA [Suspect]
     Active Substance: IBANDRONATE SODIUM
     Indication: OSTEOPOROSIS
     Dosage: STARTED IN DEC 2010
     Route: 048
  2. ACIPHEX [Concomitant]
     Active Substance: RABEPRAZOLE SODIUM
     Route: 065
  3. LIPITOR [Concomitant]
     Active Substance: ATORVASTATIN CALCIUM
     Route: 065

REACTIONS (7)
  - Loss of consciousness [Unknown]
  - Gait inability [Unknown]
  - Tremor [Unknown]
  - Pain [Unknown]
  - Dizziness [Unknown]
  - Erythema [Unknown]
  - Peripheral swelling [Unknown]
